FAERS Safety Report 25876433 (Version 1)
Quarter: 2025Q4

REPORT INFORMATION
  Report Type: Report from Study
  Country: US (occurrence: US)
  Receive Date: 20251003
  Receipt Date: 20251003
  Transmission Date: 20260118
  Serious: Yes (Other)
  Sender: BOEHRINGER INGELHEIM
  Company Number: US-BoehringerIngelheim-2025-BI-081037

PATIENT
  Age: 75 Year
  Sex: Male

DRUGS (2)
  1. OFEV [Suspect]
     Active Substance: NINTEDANIB
     Indication: Idiopathic pulmonary fibrosis
     Dates: start: 20230226
  2. OFEV [Suspect]
     Active Substance: NINTEDANIB

REACTIONS (6)
  - Cerebrovascular accident [Recovered/Resolved]
  - Cluster headache [Not Recovered/Not Resolved]
  - Ocular discomfort [Unknown]
  - Dizziness [Unknown]
  - Flatulence [Unknown]
  - Atrial fibrillation [Not Recovered/Not Resolved]

NARRATIVE: CASE EVENT DATE: 20250501
